FAERS Safety Report 21882522 (Version 1)
Quarter: 2023Q1

REPORT INFORMATION
  Report Type: Report from Study
  Country: US (occurrence: US)
  Receive Date: 20230119
  Receipt Date: 20230119
  Transmission Date: 20230417
  Serious: No
  Sender: FDA-Public Use
  Company Number: US-Accord-262532

PATIENT
  Sex: Male
  Weight: 98.70 kg

DRUGS (1)
  1. CLOZAPINE [Suspect]
     Active Substance: CLOZAPINE
     Indication: Schizophrenia
     Dosage: 100MG/2 TABS AT NIGHT
     Dates: start: 20161109, end: 202203

REACTIONS (4)
  - Thinking abnormal [Unknown]
  - Insomnia [Unknown]
  - Soliloquy [Unknown]
  - Emotional distress [Unknown]
